FAERS Safety Report 9779529 (Version 1)
Quarter: 2013Q4

REPORT INFORMATION
  Report Type: Spontaneous
  Country: US (occurrence: US)
  Receive Date: 20131223
  Receipt Date: 20131223
  Transmission Date: 20140711
  Serious: No
  Sender: FDA-Public Use
  Company Number: US-PFIZER INC-2013364502

PATIENT
  Age: 28 Year
  Sex: Male

DRUGS (2)
  1. NEURONTIN [Suspect]
     Indication: NEUROPATHY PERIPHERAL
     Dosage: 100 MG, 3X/DAY
     Dates: start: 2013
  2. NEURONTIN [Suspect]
     Indication: NEURALGIA

REACTIONS (5)
  - Neuropathy peripheral [Unknown]
  - Food intolerance [Unknown]
  - Tremor [Unknown]
  - Pain [Unknown]
  - Drug ineffective [Unknown]
